FAERS Safety Report 9802296 (Version 3)
Quarter: 2014Q1

REPORT INFORMATION
  Report Type: Spontaneous
  Country: US (occurrence: US)
  Receive Date: 20140107
  Receipt Date: 20140114
  Transmission Date: 20141002
  Serious: Yes (Death, Hospitalization, Other)
  Sender: FDA-Public Use
  Company Number: US-BAXTER-2013BAX053076

PATIENT
  Sex: Male

DRUGS (1)
  1. DIANEAL LOW CALCIUM [Suspect]
     Indication: PERITONEAL DIALYSIS
     Route: 033
     Dates: end: 20140103

REACTIONS (7)
  - General physical health deterioration [Fatal]
  - Cardiac failure [Fatal]
  - Fall [Unknown]
  - Hip fracture [Not Recovered/Not Resolved]
  - Haemorrhage [Unknown]
  - Multimorbidity [Unknown]
  - Hypotension [Recovering/Resolving]
